FAERS Safety Report 13870175 (Version 1)
Quarter: 2017Q3

REPORT INFORMATION
  Report Type: Spontaneous
  Country: US (occurrence: US)
  Receive Date: 20170815
  Receipt Date: 20170815
  Transmission Date: 20171127
  Serious: Yes (Other)
  Sender: FDA-Public Use
  Company Number: US-ENDO PHARMACEUTICALS INC-2016-004183

PATIENT
  Age: 77 Year
  Sex: Female
  Weight: 104.42 kg

DRUGS (1)
  1. SUMAVEL DOSEPRO [Suspect]
     Active Substance: SUMATRIPTAN SUCCINATE
     Indication: MIGRAINE
     Dosage: 6 MG, UNKNOWN
     Route: 058
     Dates: start: 2013

REACTIONS (9)
  - Mental impairment [Unknown]
  - Drug administered at inappropriate site [Not Recovered/Not Resolved]
  - Device malfunction [Recovered/Resolved]
  - Drug dose omission [Recovered/Resolved]
  - Malaise [Unknown]
  - Vision blurred [Recovering/Resolving]
  - Insomnia [Unknown]
  - Nausea [Not Recovered/Not Resolved]
  - Accidental exposure to product [Recovered/Resolved]

NARRATIVE: CASE EVENT DATE: 20160624
